FAERS Safety Report 11837352 (Version 1)
Quarter: 2015Q4

REPORT INFORMATION
  Report Type: Spontaneous
  Country: US (occurrence: US)
  Receive Date: 20151215
  Receipt Date: 20151215
  Transmission Date: 20160305
  Serious: No
  Sender: FDA-Public Use
  Company Number: GXBR2015US000902

PATIENT
  Sex: Female

DRUGS (8)
  1. LATUDA [Suspect]
     Active Substance: LURASIDONE HYDROCHLORIDE
     Indication: BIPOLAR DISORDER
     Dosage: 40 MG, UNK
     Route: 048
     Dates: start: 20141003
  2. LATUDA [Suspect]
     Active Substance: LURASIDONE HYDROCHLORIDE
     Dosage: 60 MG, UNK
     Route: 048
  3. ZYPREXA [Concomitant]
     Active Substance: OLANZAPINE
     Dosage: UNK DF, UNK
  4. PERPHENAZINE TABLETS USP [Suspect]
     Active Substance: PERPHENAZINE
     Dosage: 4 MG, QD
     Route: 065
     Dates: start: 20141106
  5. LAMICTAL [Concomitant]
     Active Substance: LAMOTRIGINE
     Dosage: UNK DF, UNK
     Dates: start: 201409
  6. PERPHENAZINE TABLETS USP [Suspect]
     Active Substance: PERPHENAZINE
     Dosage: 8 MG, QHS
     Route: 065
     Dates: start: 20141106
  7. PERPHENAZINE TABLETS USP [Suspect]
     Active Substance: PERPHENAZINE
     Indication: PRODUCT USED FOR UNKNOWN INDICATION
     Dosage: 8 MG, QD
     Route: 065
  8. LITHIUM. [Concomitant]
     Active Substance: LITHIUM
     Dosage: UNK DF, UNK
     Dates: start: 20141003

REACTIONS (3)
  - Dysphagia [Unknown]
  - Back pain [Unknown]
  - Dysphemia [Unknown]
